FAERS Safety Report 8911126 (Version 1)
Quarter: 2012Q4

REPORT INFORMATION
  Report Type: 
  Country: FR (occurrence: FR)
  Receive Date: 20121116
  Receipt Date: 20121116
  Transmission Date: 20130627
  Serious: Yes (Other)
  Sender: FDA-Public Use
  Company Number: FR-AMGEN-FRASP2012064655

PATIENT
  Age: 29 Year
  Sex: Male
  Weight: 52 kg

DRUGS (3)
  1. ENBREL [Suspect]
     Indication: ANKYLOSING SPONDYLITIS
     Dosage: 50 mg, UNK
     Route: 058
     Dates: start: 201112, end: 201204
  2. VOLTARENE                          /00372302/ [Concomitant]
     Indication: ANKYLOSING SPONDYLITIS
     Dosage: 75 mg, 1x/day
     Route: 048
     Dates: start: 2001
  3. ADALIMUMAB [Concomitant]
     Dosage: UNK

REACTIONS (2)
  - Skin exfoliation [Recovered/Resolved]
  - Injection site pain [Recovered/Resolved]
